FAERS Safety Report 10108777 (Version 2)
Quarter: 2014Q2

REPORT INFORMATION
  Report Type: Report from Study
  Country: CN (occurrence: CN)
  Receive Date: 20140425
  Receipt Date: 20140603
  Transmission Date: 20141212
  Serious: Yes (Hospitalization)
  Sender: FDA-Public Use
  Company Number: CN-BRISTOL-MYERS SQUIBB COMPANY-20643904

PATIENT
  Age: 51 Year
  Sex: Male

DRUGS (1)
  1. BYETTA [Suspect]
     Indication: DIABETES MELLITUS
     Route: 058
     Dates: start: 20120901

REACTIONS (2)
  - Cerebral thrombosis [Unknown]
  - Hypoglycaemia [Recovering/Resolving]
